FAERS Safety Report 5528628-6 (Version None)
Quarter: 2007Q4

REPORT INFORMATION
  Report Type: 
  Country: None (occurrence: None)
  Receive Date: 20071109
  Receipt Date: 20070423
  Transmission Date: 20080405
  Serious: Yes (Hospitalization, Other)
  Sender: FDA-Public Use
  Company Number: PHEH2007US06170

PATIENT
  Age: 51 Year
  Sex: Female
  Weight: 72.6 kg

DRUGS (7)
  1. ESTRADERM [Suspect]
     Indication: MENOPAUSE
     Dosage: 0.05 MG, TRANSDERMAL
     Route: 062
     Dates: start: 19980101, end: 19990721
  2. PROVERA [Suspect]
     Indication: MENOPAUSE
     Dosage: 10 MG, QD ; 2.5MG QD
     Dates: start: 19920101, end: 19990101
  3. PROVERA [Suspect]
     Indication: MENOPAUSE
     Dosage: 10 MG, QD ; 2.5MG QD
     Dates: start: 19920101, end: 19990101
  4. PREMARIN [Suspect]
     Indication: MENOPAUSE
     Dosage: 0.625 MG, QD, ORAL
     Route: 048
     Dates: start: 19920101, end: 19990101
  5. ESTRACE [Suspect]
  6. PROGESTERONE [Suspect]
     Indication: MENOPAUSE
     Dosage: PRN, INTRAMUSCULAR
     Route: 030
     Dates: start: 19920101
  7. RANITIDINE [Concomitant]

REACTIONS (16)
  - ANXIETY [None]
  - BREAST CANCER [None]
  - BREAST MASS [None]
  - BREAST TENDERNESS [None]
  - CHEST PAIN [None]
  - DEPRESSION [None]
  - ELECTROCARDIOGRAM ABNORMAL [None]
  - FIBROCYSTIC BREAST DISEASE [None]
  - HYPERTENSION [None]
  - HYSTERECTOMY [None]
  - MODIFIED RADICAL MASTECTOMY [None]
  - OSTEOPENIA [None]
  - OSTEOPOROSIS [None]
  - PARAESTHESIA [None]
  - SALPINGO-OOPHORECTOMY BILATERAL [None]
  - UTERINE LEIOMYOMA [None]
